FAERS Safety Report 13890610 (Version 2)
Quarter: 2017Q4

REPORT INFORMATION
  Report Type: Spontaneous
  Country: CA (occurrence: CA)
  Receive Date: 20170822
  Receipt Date: 20171018
  Transmission Date: 20180320
  Serious: Yes (Other)
  Sender: FDA-Public Use
  Company Number: CA-PFIZER INC-2017356499

PATIENT
  Sex: Female

DRUGS (1)
  1. GD-DICLOFENAC/MISOPROSTOL [Suspect]
     Active Substance: DICLOFENAC SODIUM\MISOPROSTOL
     Route: 048

REACTIONS (3)
  - Choking [Recovered/Resolved]
  - Product use complaint [Unknown]
  - Product coating issue [Unknown]

NARRATIVE: CASE EVENT DATE: 20170812
